FAERS Safety Report 24190655 (Version 1)
Quarter: 2024Q3

REPORT INFORMATION
  Report Type: Spontaneous
  Country: US (occurrence: None)
  Receive Date: 20240808
  Receipt Date: 20240808
  Transmission Date: 20241016
  Serious: Yes (Hospitalization)
  Sender: Public
  Company Number: None

PATIENT
  Age: 81 Year
  Sex: Female
  Weight: 95 kg

DRUGS (1)
  1. IBRANCE [Suspect]
     Active Substance: PALBOCICLIB
     Indication: Breast cancer female
     Dosage: OTHER FREQUENCY : DAYS 1-21 OF 28;?
     Route: 048
     Dates: start: 20240627, end: 20240708

REACTIONS (6)
  - Laboratory test abnormal [None]
  - Dyspnoea [None]
  - Renal impairment [None]
  - Fatigue [None]
  - Therapy interrupted [None]
  - Oxygen consumption increased [None]

NARRATIVE: CASE EVENT DATE: 20240708
